FAERS Safety Report 21218397 (Version 1)
Quarter: 2022Q3

REPORT INFORMATION
  Report Type: Spontaneous
  Country: FR (occurrence: FR)
  Receive Date: 20220816
  Receipt Date: 20220816
  Transmission Date: 20221026
  Serious: No
  Sender: FDA-Public Use
  Company Number: None

PATIENT
  Age: 78 Year
  Sex: Male
  Weight: 68 kg

DRUGS (4)
  1. SODIUM CHLORIDE [Suspect]
     Active Substance: SODIUM CHLORIDE
     Indication: Von Willebrand^s disease
     Dosage: 50 ML
     Route: 065
     Dates: start: 20220120, end: 20220124
  2. EQWILATE [Suspect]
     Active Substance: HUMAN COAGULATION FACTOR VIII/VON WILLEBRAND FACTOR COMPLEX
     Indication: Von Willebrand^s disease
     Dosage: EQWILATE 1000 IU VWF/1000 IU FVIII, POWDER AND SOLVENT FOR SOLUTION FOR INJECTION, 4000 IU EVERY 4 D
     Route: 042
     Dates: start: 20220120, end: 20220124
  3. INSULIN GLARGINE [Concomitant]
     Active Substance: INSULIN GLARGINE
     Indication: Diabetes mellitus
     Dosage: INSULIN GLARGINE 100 UI/ML, 12 [IU] QD
     Route: 065
  4. IRBESARTAN [Concomitant]
     Active Substance: IRBESARTAN
     Indication: Hypertension
     Dosage: 300 MG, QD
     Route: 065

REACTIONS (2)
  - Product preparation error [Recovered/Resolved]
  - Chills [Recovered/Resolved]

NARRATIVE: CASE EVENT DATE: 20220120
